FAERS Safety Report 6306904-7 (Version None)
Quarter: 2009Q3

REPORT INFORMATION
  Report Type: 
  Country: None (occurrence: None)
  Receive Date: 20090811
  Receipt Date: 20090811
  Transmission Date: 20100115
  Serious: Yes (Other)
  Sender: FDA-Public Use
  Company Number: None

PATIENT
  Age: 36 Year
  Sex: Female
  Weight: 49.8957 kg

DRUGS (1)
  1. LEVAQUIN [Suspect]
     Indication: KIDNEY INFECTION
     Dosage: 1 TABLE BID PO
     Route: 048
     Dates: start: 20090714, end: 20090714

REACTIONS (8)
  - BACK PAIN [None]
  - DRUG INTERACTION [None]
  - DYSSTASIA [None]
  - HYPOAESTHESIA [None]
  - INFLUENZA [None]
  - PAIN IN EXTREMITY [None]
  - PARAESTHESIA [None]
  - RASH [None]
